FAERS Safety Report 18094977 (Version 1)
Quarter: 2020Q3

REPORT INFORMATION
  Report Type: Spontaneous
  Country: FR (occurrence: FR)
  Receive Date: 20200730
  Receipt Date: 20200730
  Transmission Date: 20201103
  Serious: Yes (Other)
  Sender: FDA-Public Use
  Company Number: FR-JNJFOC-20200741124

PATIENT
  Age: 54 Year
  Sex: Female
  Weight: 77 kg

DRUGS (13)
  1. DERMOVAL                           /00008501/ [Concomitant]
     Active Substance: CLOBETASOL PROPIONATE
     Indication: PRODUCT USED FOR UNKNOWN INDICATION
     Dates: start: 20140623, end: 20191004
  2. TOCTINO [Concomitant]
     Active Substance: ALITRETINOIN
     Indication: PRODUCT USED FOR UNKNOWN INDICATION
     Dosage: LATEST DOSE RECEIVED ON 17?JUL?2020
     Dates: start: 20200310
  3. ACITRETINE [Concomitant]
     Active Substance: ACITRETIN
     Indication: PRODUCT USED FOR UNKNOWN INDICATION
     Dates: start: 20190705, end: 20191004
  4. TREMFYA [Suspect]
     Active Substance: GUSELKUMAB
     Indication: PSORIASIS
     Route: 058
     Dates: start: 20191004, end: 20200717
  5. IXEKIZUMAB [Concomitant]
     Active Substance: IXEKIZUMAB
     Indication: PRODUCT USED FOR UNKNOWN INDICATION
     Route: 058
     Dates: start: 20181102, end: 20190222
  6. RIFINAH [Concomitant]
     Active Substance: ISONIAZID\RIFAMPIN
     Indication: PRODUCT USED FOR UNKNOWN INDICATION
     Dates: start: 20170908, end: 20180316
  7. DEXERYL                            /01579901/ [Concomitant]
     Active Substance: GLYCERIN\MINERAL OIL\PETROLATUM
     Indication: PRODUCT USED FOR UNKNOWN INDICATION
     Dates: start: 20150605, end: 20171013
  8. TREMFYA [Suspect]
     Active Substance: GUSELKUMAB
  9. MELADININE                         /00384001/ [Concomitant]
     Active Substance: METHOXSALEN
     Indication: PRODUCT USED FOR UNKNOWN INDICATION
     Dates: start: 20140623, end: 201409
  10. XAMIOL                             /06356901/ [Concomitant]
     Active Substance: BETAMETHASONE DIPROPIONATE\CALCIPOTRIENE
     Indication: PRODUCT USED FOR UNKNOWN INDICATION
     Dosage: LATEST DOSE RECEIVED ON 17?JUL?2020
     Dates: start: 20180622
  11. DAIVOBET [Concomitant]
     Active Substance: BETAMETHASONE DIPROPIONATE\CALCIPOTRIENE
     Indication: PRODUCT USED FOR UNKNOWN INDICATION
     Dates: start: 20161216, end: 20191004
  12. TREMFYA [Suspect]
     Active Substance: GUSELKUMAB
  13. NOVATREX (METHOTREXATE) [Concomitant]
     Active Substance: METHOTREXATE SODIUM
     Indication: PRODUCT USED FOR UNKNOWN INDICATION
     Dates: start: 20150917, end: 20161216

REACTIONS (1)
  - Pituitary tumour benign [Not Recovered/Not Resolved]

NARRATIVE: CASE EVENT DATE: 20200415
